FAERS Safety Report 5563405-1 (Version None)
Quarter: 2007Q4

REPORT INFORMATION
  Report Type: 
  Country: None (occurrence: None)
  Receive Date: 20071212
  Receipt Date: 20071128
  Transmission Date: 20080405
  Serious: Yes (Hospitalization)
  Sender: FDA-Public Use
  Company Number: 021227

PATIENT
  Age: 14 Year
  Sex: Male

DRUGS (5)
  1. CLARAVIS [Suspect]
     Indication: ACNE CYSTIC
     Dosage: 30 MG, BID, ORAL
     Route: 048
     Dates: start: 20070828, end: 20070901
  2. CLARAVIS [Suspect]
     Indication: ACNE CYSTIC
     Dosage: 30 MG, BID, ORAL
     Route: 048
     Dates: start: 20071101
  3. SINGULAIR [Concomitant]
  4. ADVAIR DISKUS 100/50 [Concomitant]
  5. NASONEX [Concomitant]

REACTIONS (2)
  - APPENDICITIS [None]
  - COLITIS [None]
